FAERS Safety Report 18681283 (Version 5)
Quarter: 2022Q4

REPORT INFORMATION
  Report Type: Report from Study
  Country: US (occurrence: None)
  Receive Date: 20201230
  Receipt Date: 20221013
  Transmission Date: 20230112
  Serious: Yes (Other)
  Sender: FDA-Public Use
  Company Number: US-ROCHE-2736869

PATIENT
  Age: 61 Year
  Sex: Female
  Weight: 80.3 kg

DRUGS (4)
  1. ATEZOLIZUMAB [Suspect]
     Active Substance: ATEZOLIZUMAB
     Indication: Diffuse large B-cell lymphoma
     Dosage: C2D1:01/OCT/2020, C3D1: 29/OCT/2020?DATE OF MOST RECENT DOSE PRIOR TO SAE: 12/NOV/2020?TOTAL ADMINIS
     Route: 041
     Dates: start: 20200917
  2. RITUXIMAB [Suspect]
     Active Substance: RITUXIMAB
     Indication: Diffuse large B-cell lymphoma
     Dosage: C2D1:01/OCT/2020, C3D1: 29/OCT/2020?DATE OF MOST RECENT DOSE PRIOR TO SAE: 12/NOV/2020 1400 MG?(DOSE
     Route: 042
     Dates: start: 20200917
  3. GEMCITABINE HYDROCHLORIDE [Suspect]
     Active Substance: GEMCITABINE HYDROCHLORIDE
     Indication: Diffuse large B-cell lymphoma
     Dosage: C2D1:01/OCT/2020, C3D1: 29/OCT/2020?DATE OF MOST RECENT DOSE PRIOR TO SAE: 12/NOV/2020 3952 MG (DOSE
     Route: 042
     Dates: start: 20200917
  4. OXALIPLATIN [Suspect]
     Active Substance: OXALIPLATIN
     Indication: Diffuse large B-cell lymphoma
     Dosage: C2D1:01/OCT/2020, C3D1: 29/OCT/2020?DATE OF MOST RECENT DOSE PRIOR TO SAE: 12/NOV/2020 390 MG (DOSE
     Route: 042
     Dates: start: 20200917

REACTIONS (6)
  - Platelet count decreased [Recovered/Resolved]
  - Respiratory failure [Recovered/Resolved]
  - Aspiration [Recovered/Resolved]
  - Hypoxia [Recovered/Resolved]
  - Lymphocyte count decreased [Unknown]
  - Hypertension [Unknown]

NARRATIVE: CASE EVENT DATE: 20201209
